FAERS Safety Report 8940958 (Version 1)
Quarter: 2012Q4

REPORT INFORMATION
  Report Type: 
  Country: US (occurrence: US)
  Receive Date: 20121203
  Receipt Date: 20121203
  Transmission Date: 20130627
  Serious: No
  Sender: FDA-Public Use
  Company Number: US-009507513-1212USA000320

PATIENT
  Age: 4 Year
  Sex: Female
  Weight: 12.7 kg

DRUGS (3)
  1. CLARITIN ORAL SOLUTION [Suspect]
     Indication: COUGH
     Dosage: 5 mg, qd
     Route: 048
  2. CLARITIN ORAL SOLUTION [Suspect]
     Indication: NASOPHARYNGITIS
     Dosage: 5 mg, bid
     Route: 048
     Dates: start: 20121105
  3. CLARITIN ORAL SOLUTION [Suspect]
     Indication: MEDICAL OBSERVATION

REACTIONS (2)
  - Overdose [Unknown]
  - Off label use [Unknown]
